FAERS Safety Report 24960406 (Version 3)
Quarter: 2025Q2

REPORT INFORMATION
  Report Type: Spontaneous
  Country: AU (occurrence: AU)
  Receive Date: 20250212
  Receipt Date: 20250603
  Transmission Date: 20250717
  Serious: Yes (Life-Threatening, Hospitalization)
  Sender: PFIZER
  Company Number: AU-MLMSERVICE-20250203-PI387892-00232-1

PATIENT
  Age: 3 Decade
  Sex: Female

DRUGS (12)
  1. METHYLPREDNISOLONE SODIUM SUCCINATE [Suspect]
     Active Substance: METHYLPREDNISOLONE SODIUM SUCCINATE
     Indication: Pulmonary arterial hypertension
     Route: 042
  2. METHYLPREDNISOLONE SODIUM SUCCINATE [Suspect]
     Active Substance: METHYLPREDNISOLONE SODIUM SUCCINATE
     Indication: Connective tissue disorder
  3. METHYLPREDNISOLONE SODIUM SUCCINATE [Suspect]
     Active Substance: METHYLPREDNISOLONE SODIUM SUCCINATE
     Indication: Systemic lupus erythematosus
  4. CYCLOPHOSPHAMIDE [Suspect]
     Active Substance: CYCLOPHOSPHAMIDE
     Indication: Pulmonary arterial hypertension
  5. CYCLOPHOSPHAMIDE [Suspect]
     Active Substance: CYCLOPHOSPHAMIDE
     Indication: Connective tissue disorder
  6. CYCLOPHOSPHAMIDE [Suspect]
     Active Substance: CYCLOPHOSPHAMIDE
     Indication: Systemic lupus erythematosus
  7. MYCOPHENOLATE MOFETIL [Suspect]
     Active Substance: MYCOPHENOLATE MOFETIL
     Indication: Pulmonary arterial hypertension
  8. MYCOPHENOLATE MOFETIL [Suspect]
     Active Substance: MYCOPHENOLATE MOFETIL
     Indication: Connective tissue disorder
  9. MYCOPHENOLATE MOFETIL [Suspect]
     Active Substance: MYCOPHENOLATE MOFETIL
     Indication: Systemic lupus erythematosus
  10. EPOPROSTENOL [Concomitant]
     Active Substance: EPOPROSTENOL
     Indication: Pulmonary arterial hypertension
     Route: 042
  11. MACITENTAN [Concomitant]
     Active Substance: MACITENTAN
     Indication: Pulmonary arterial hypertension
  12. SILDENAFIL [Concomitant]
     Active Substance: SILDENAFIL
     Indication: Pulmonary arterial hypertension

REACTIONS (3)
  - Pneumonia cytomegaloviral [Recovered/Resolved]
  - Stenotrophomonas maltophilia pneumonia [Recovered/Resolved]
  - Acute respiratory failure [Recovered/Resolved]
